FAERS Safety Report 21880754 (Version 2)
Quarter: 2023Q4

REPORT INFORMATION
  Report Type: Report from Study
  Country: FR (occurrence: FR)
  Receive Date: 20230118
  Receipt Date: 20231117
  Transmission Date: 20240109
  Serious: Yes (Death, Other)
  Sender: FDA-Public Use
  Company Number: FR-JNJFOC-20221157697

PATIENT
  Age: 69 Year
  Sex: Female

DRUGS (7)
  1. DEXAMETHASONE [Suspect]
     Active Substance: DEXAMETHASONE
     Indication: Plasma cell myeloma
     Dosage: 20 MG/DOSE, 4 DOSE(S)/WEEK, 2 WEEK(S)/CYCLE, LINE NUMBER 1
     Route: 065
     Dates: end: 20201027
  2. DEXAMETHASONE [Suspect]
     Active Substance: DEXAMETHASONE
     Dosage: 20 MILLIGRAM, QW 1 DOSE/WEEK 3 WEEKS/CYCLE
     Route: 065
  3. LENALIDOMIDE [Suspect]
     Active Substance: LENALIDOMIDE
     Indication: Plasma cell myeloma
     Dosage: 25 MILLIGRAM, Q2W, 7 DOSES,2 WEEK/CYCLE, LINE- NUMBER 1
     Route: 065
     Dates: end: 20201027
  4. LENALIDOMIDE [Suspect]
     Active Substance: LENALIDOMIDE
     Dosage: 25 MILLIGRAM, Q3W, (0.14 WEEKS) 7 DOSES/WEEK,3 WEEK/CYCLE
     Route: 065
  5. LENALIDOMIDE [Suspect]
     Active Substance: LENALIDOMIDE
     Dosage: 10 MG, Q3W (0.14 WEEKS) MAINTENANCE DOSE 7 DOSES/WEEK 3 WEEKS/CYCLE, LINE NUMBER: 1
     Route: 065
  6. VELCADE [Suspect]
     Active Substance: BORTEZOMIB
     Indication: Plasma cell myeloma
     Dosage: 1.3 MG/M2/DOSE, 2 DOSE(S)/WEEK, 2 WEEK(S)/CYCLE, LINE NUMBER 1
     Route: 065
     Dates: end: 20201027
  7. VELCADE [Suspect]
     Active Substance: BORTEZOMIB
     Dosage: 1.3 MILLIGRAM/SQ. METER, QW 2/DOSE 1 DOSE/WEEK 3 WEEKS/CYCLE
     Route: 065

REACTIONS (5)
  - Acute respiratory distress syndrome [Fatal]
  - Septic shock [Fatal]
  - Chronic kidney disease [Unknown]
  - Intentional product use issue [Unknown]
  - Off label use [Unknown]

NARRATIVE: CASE EVENT DATE: 20201027
